FAERS Safety Report 6442793-8 (Version None)
Quarter: 2009Q4

REPORT INFORMATION
  Report Type: 
  Country: None (occurrence: None)
  Receive Date: 20091117
  Receipt Date: 20091113
  Transmission Date: 20100525
  Serious: Yes (Death, Hospitalization, Other)
  Sender: FDA-Public Use
  Company Number: PHEH2009US11213

PATIENT
  Sex: Female

DRUGS (9)
  1. EXJADE [Suspect]
     Indication: IRON OVERLOAD
     Dosage: 1500 MG DAILY
     Route: 048
     Dates: start: 20080324, end: 20090606
  2. EXJADE [Suspect]
     Indication: IRON METABOLISM DISORDER
  3. VIDAZA [Concomitant]
  4. NEUPOGEN [Concomitant]
  5. ARANESP [Concomitant]
  6. CYCLOPHOSPHAMIDE [Concomitant]
  7. VINCRISTINE [Concomitant]
  8. METHOTREXATE [Concomitant]
  9. DEXAMETHASONE [Concomitant]

REACTIONS (10)
  - ACUTE LYMPHOCYTIC LEUKAEMIA RECURRENT [None]
  - APHASIA [None]
  - ASTHENIA [None]
  - FEBRILE NEUTROPENIA [None]
  - GRANULOMA [None]
  - JC VIRUS INFECTION [None]
  - MALIGNANT NEOPLASM PROGRESSION [None]
  - PANCYTOPENIA [None]
  - PROGRESSIVE MULTIFOCAL LEUKOENCEPHALOPATHY [None]
  - STAPHYLOCOCCAL INFECTION [None]
